FAERS Safety Report 9097061 (Version 1)
Quarter: 2013Q1

REPORT INFORMATION
  Report Type: Spontaneous
  Country: CA (occurrence: None)
  Receive Date: 20130123
  Receipt Date: 20130123
  Transmission Date: 20140127
  Serious: Yes (Hospitalization)
  Sender: FDA-Public Use
  Company Number: 2013-0239

PATIENT
  Age: 32 Year
  Sex: Female
  Weight: 83 kg

DRUGS (2)
  1. LANREOTIDE [Suspect]
     Indication: PRODUCT USED FOR UNKNOWN INDICATION
     Route: 030
  2. CORTEF (HYDROCORTISONE) [Concomitant]

REACTIONS (3)
  - Diarrhoea haemorrhagic [None]
  - Abdominal discomfort [None]
  - Dizziness [None]
